FAERS Safety Report 12139272 (Version 2)
Quarter: 2016Q2

REPORT INFORMATION
  Report Type: Spontaneous
  Country: FR (occurrence: FR)
  Receive Date: 20160303
  Receipt Date: 20160602
  Transmission Date: 20160815
  Serious: Yes (Hospitalization, Other)
  Sender: FDA-Public Use
  Company Number: FR-AMGEN-FRASP2016025427

PATIENT
  Age: 48 Year
  Sex: Female
  Weight: 66 kg

DRUGS (3)
  1. ENBREL [Suspect]
     Active Substance: ETANERCEPT
     Indication: SPONDYLITIS
     Dosage: 50 MG, WEEKLY
     Route: 058
     Dates: start: 20111028, end: 20151215
  2. CEBUTID [Concomitant]
     Active Substance: FLURBIPROFEN
     Indication: SPONDYLITIS
     Dosage: UNK, AS NEEDED
     Route: 048
     Dates: start: 2011, end: 201603
  3. OGASTORO [Concomitant]
     Active Substance: LANSOPRAZOLE
     Dosage: 15 MG DAILY, IF FLURBIPROFEN TAKEN
     Route: 048
     Dates: start: 2011

REACTIONS (3)
  - Spondylitis [Unknown]
  - Condition aggravated [Unknown]
  - Invasive lobular breast carcinoma [Unknown]

NARRATIVE: CASE EVENT DATE: 20150215
